FAERS Safety Report 10644140 (Version 1)
Quarter: 2014Q4

REPORT INFORMATION
  Report Type: Spontaneous
  Country: US (occurrence: US)
  Receive Date: 20141210
  Receipt Date: 20141210
  Transmission Date: 20150529
  Serious: No
  Sender: FDA-Public Use
  Company Number: US-009507513-1408USA015934

PATIENT
  Sex: Female

DRUGS (1)
  1. CLARITIN [Suspect]
     Active Substance: LORATADINE
     Indication: ALLERGIC SINUSITIS
     Dosage: 10 MG, ONCE
     Route: 048

REACTIONS (1)
  - Drug ineffective [Unknown]
